FAERS Safety Report 12903757 (Version 2)
Quarter: 2016Q4

REPORT INFORMATION
  Report Type: Spontaneous
  Country: US (occurrence: US)
  Receive Date: 20161102
  Receipt Date: 20161130
  Transmission Date: 20170207
  Serious: No
  Sender: FDA-Public Use
  Company Number: US-HORIZON-RAV-0230-2016

PATIENT
  Age: 16 Year
  Sex: Male

DRUGS (3)
  1. CYCLINEX [Concomitant]
     Dosage: FROM 100 G TO 132 G
  2. PRO-PHREE [Concomitant]
     Dosage: INCREASED TO 60 G
  3. RAVICTI [Suspect]
     Active Substance: GLYCEROL PHENYLBUTYRATE
     Indication: ARGINASE DEFICIENCY
     Dosage: 3.5 ML TID
     Dates: start: 20160901

REACTIONS (1)
  - Amino acid level decreased [Recovered/Resolved]

NARRATIVE: CASE EVENT DATE: 20161019
